FAERS Safety Report 5166106-7 (Version None)
Quarter: 2006Q4

REPORT INFORMATION
  Report Type: 
  Country: None (occurrence: None)
  Receive Date: 20061129
  Receipt Date: 20061121
  Transmission Date: 20070319
  Serious: Yes (Other)
  Sender: FDA-Public Use
  Company Number: SPV1-2006-01768

PATIENT
  Age: 14 Year
  Sex: Male
  Weight: 54.9 kg

DRUGS (2)
  1. ADDERALL XR (DEXTROAMPHETAMINE SULFATE, DEXTROAMPHETAMINE SUCCHARATE, [Suspect]
     Indication: ATTENTION DEFICIT/HYPERACTIVITY DISORDER
     Dosage: 30 MG, 1X/DAY; QD, ORAL
     Route: 048
     Dates: start: 20050101, end: 20061001
  2. LAMICTAL [Concomitant]

REACTIONS (1)
  - HYPOGLYCAEMIC COMA [None]
